FAERS Safety Report 23696011 (Version 1)
Quarter: 2024Q2

REPORT INFORMATION
  Report Type: Spontaneous
  Country: CN (occurrence: CN)
  Receive Date: 20240402
  Receipt Date: 20240402
  Transmission Date: 20240715
  Serious: Yes (Life-Threatening, Other)
  Sender: FDA-Public Use
  Company Number: CN-SA-SAC20240330000011

PATIENT
  Age: 69 Year
  Sex: Male

DRUGS (2)
  1. ANTI-THYMOCYTE GLOBULIN (RABBIT) NOS [Suspect]
     Active Substance: LAPINE T-LYMPHOCYTE IMMUNE GLOBULIN
     Indication: Graft versus host disease
     Dosage: 150 MG, QD
     Route: 041
     Dates: start: 20240312, end: 20240316
  2. SODIUM CHLORIDE [Concomitant]
     Active Substance: SODIUM CHLORIDE
     Dosage: 100 ML, QD
     Route: 041
     Dates: start: 20240312, end: 20240316

REACTIONS (3)
  - Condition aggravated [Recovering/Resolving]
  - Hyperpyrexia [Recovering/Resolving]
  - Diarrhoea [Recovering/Resolving]

NARRATIVE: CASE EVENT DATE: 20240312
